FAERS Safety Report 7640877-X (Version None)
Quarter: 2011Q3

REPORT INFORMATION
  Report Type: 
  Country: None (occurrence: None)
  Receive Date: 20110728
  Receipt Date: 20110728
  Transmission Date: 20111222
  Serious: Yes (Hospitalization)
  Sender: FDA-Public Use
  Company Number: None

PATIENT
  Age: 49 Year
  Sex: Female
  Weight: 65 kg

DRUGS (3)
  1. ZOLPIDEM [Concomitant]
     Route: 048
  2. ALPRAZOLAM [Concomitant]
     Route: 048
  3. ASENAPINE [Suspect]
     Indication: ANXIETY
     Dates: start: 20110713, end: 20110718

REACTIONS (7)
  - SYNCOPE [None]
  - DIZZINESS [None]
  - FALL [None]
  - HYPOTENSION [None]
  - RENAL FAILURE ACUTE [None]
  - LACERATION [None]
  - HYPOAESTHESIA ORAL [None]
